FAERS Safety Report 6462589-0 (Version None)
Quarter: 2009Q4

REPORT INFORMATION
  Report Type: 
  Country: None (occurrence: None)
  Receive Date: 20091130
  Receipt Date: 20091116
  Transmission Date: 20100525
  Serious: Yes (Other)
  Sender: FDA-Public Use
  Company Number: AU-PFIZER INC-2009297715

PATIENT
  Sex: Male

DRUGS (2)
  1. CHAMPIX [Suspect]
     Dosage: UNK
     Dates: start: 20090101
  2. CHLORSIG [Suspect]
     Indication: EYE INJURY
     Dosage: EVERY THREE HOURS

REACTIONS (4)
  - EYE INJURY [None]
  - MALAISE [None]
  - NAUSEA [None]
  - VOMITING [None]
